FAERS Safety Report 23357920 (Version 2)
Quarter: 2024Q1

REPORT INFORMATION
  Report Type: Spontaneous
  Country: PT (occurrence: PT)
  Receive Date: 20240102
  Receipt Date: 20240104
  Transmission Date: 20240409
  Serious: Yes (Life-Threatening, Hospitalization, Other)
  Sender: FDA-Public Use
  Company Number: PT-Accord-396134

PATIENT
  Age: 39 Year
  Sex: Female

DRUGS (16)
  1. SERTRALINE [Suspect]
     Active Substance: SERTRALINE HYDROCHLORIDE
     Indication: Antipsychotic therapy
  2. QUETIAPINE [Suspect]
     Active Substance: QUETIAPINE
     Indication: Antipsychotic therapy
  3. RISPERIDONE [Suspect]
     Active Substance: RISPERIDONE
     Indication: Antipsychotic therapy
  4. LORAZEPAM [Suspect]
     Active Substance: LORAZEPAM
     Indication: Antipsychotic therapy
  5. FENTANYL [Suspect]
     Active Substance: FENTANYL\FENTANYL CITRATE
     Indication: Antipsychotic therapy
     Route: 062
  6. HALOPERIDOL [Suspect]
     Active Substance: HALOPERIDOL
     Route: 048
  7. VALPROIC ACID [Suspect]
     Active Substance: VALPROIC ACID
     Indication: Antipsychotic therapy
  8. DIAZEPAM [Concomitant]
     Active Substance: DIAZEPAM
  9. ALBUTEROL\IPRATROPIUM [Concomitant]
     Active Substance: ALBUTEROL\IPRATROPIUM
     Dosage: 0.5/0.25 MG
  10. BUDESONIDE [Concomitant]
     Active Substance: BUDESONIDE
  11. ACETYLCYSTEINE [Concomitant]
     Active Substance: ACETYLCYSTEINE
  12. BACLOFEN [Concomitant]
     Active Substance: BACLOFEN
  13. LACTULOSE [Concomitant]
     Active Substance: LACTULOSE
  14. FERROUS SULFATE [Concomitant]
     Active Substance: FERROUS SULFATE
  15. QUETIAPINE [Suspect]
     Active Substance: QUETIAPINE
     Indication: Antipsychotic therapy
  16. LORAZEPAM [Suspect]
     Active Substance: LORAZEPAM
     Indication: Antipsychotic therapy

REACTIONS (1)
  - Neuroleptic malignant syndrome [Recovered/Resolved]
